FAERS Safety Report 8277979-3 (Version None)
Quarter: 2012Q2

REPORT INFORMATION
  Report Type: 
  Country: None (occurrence: None)
  Receive Date: 20120412
  Receipt Date: 20120403
  Transmission Date: 20120825
  Serious: Yes (Other)
  Sender: FDA-Public Use
  Company Number: US-ASTRAZENECA-2011SE00293

PATIENT
  Age: 88 Year
  Sex: Female

DRUGS (2)
  1. NEXIUM [Suspect]
     Route: 048
  2. TOPROL-XL [Suspect]
     Route: 048

REACTIONS (8)
  - PNEUMONIA [None]
  - HYPERTENSION [None]
  - BRONCHITIS [None]
  - ADDISON'S DISEASE [None]
  - HAEMATOMA [None]
  - PHARYNGITIS STREPTOCOCCAL [None]
  - MALAISE [None]
  - DRUG INEFFECTIVE [None]
